FAERS Safety Report 8707884 (Version 3)
Quarter: 2012Q4

REPORT INFORMATION
  Report Type: 
  Country: US (occurrence: US)
  Receive Date: 20120806
  Receipt Date: 20121105
  Transmission Date: 20130627
  Serious: No
  Sender: FDA-Public Use
  Company Number: US-PFIZER INC-2012186983

PATIENT
  Age: 70 Year
  Sex: Female
  Weight: 63.9 kg

DRUGS (18)
  1. XALKORI [Suspect]
     Indication: NON-SMALL CELL LUNG CANCER
     Dosage: 250 mg, 2x/day
     Route: 048
     Dates: start: 20120723
  2. XALKORI [Suspect]
     Indication: LUNG NEOPLASM MALIGNANT
  3. ZANTAC [Concomitant]
     Dosage: 150 mg, one tablet as directed
     Route: 048
  4. AMOXICILLIN TRIHYDRATE/CLAVULANATE POTASSIUM [Concomitant]
     Dosage: UNK
     Route: 048
  5. BUPROPION HYDROCHLORIDE [Concomitant]
     Dosage: 150 mg, 1x/day
     Route: 048
  6. CIPRO [Concomitant]
     Indication: FEVER
     Dosage: 500 mg, 2x/day
     Route: 048
  7. DEXAMETHASONE [Concomitant]
     Dosage: 4 mg, Take 2 as directed
     Route: 048
  8. DIOVAN HCT [Concomitant]
     Dosage: 160-25mg Tablet(s) Take 1 PO daily
     Route: 048
  9. DIOVANE [Concomitant]
     Dosage: 160 mg, Take 1 PO daily
     Route: 048
  10. DIPHENHYDRAMINE HYDROCHLORIDE [Concomitant]
     Dosage: 25 mg, Take 2 PO as directed
     Route: 048
  11. KLOR-CON [Concomitant]
     Dosage: 10 mEq, 1x/day
     Route: 048
  12. LEVOTHYROXINE SODIUM [Concomitant]
     Route: 048
  13. LOVASTATIN [Concomitant]
     Dosage: 40 mg, 1x/day (with evening meals)
     Route: 048
  14. ONDANSETRON [Concomitant]
     Dosage: 8 mg, Take 1 ODT PO Q8H X 4 doses start just before chemo
     Route: 048
  15. PROCHLORPERAZINE MALEATE [Concomitant]
     Indication: NAUSEA
     Dosage: 10 mg, Take 1 PO Q6H as needed
     Route: 048
  16. SERTRALINE HYDROCHLORIDE [Concomitant]
     Dosage: 50 mg, Take 1 PO daily
     Route: 048
  17. TAZTIA XT [Concomitant]
     Dosage: 360 mg, Take 1 PO QAM
     Route: 048
  18. HYDROCHLOROTHIAZIDE WITH TRIAMTERENE [Concomitant]
     Dosage: 37.5-25 mg Capsule(s) Take 1 PO daily
     Route: 048

REACTIONS (1)
  - Gastrooesophageal reflux disease [Unknown]
